FAERS Safety Report 9168270 (Version 1)
Quarter: 2013Q1

REPORT INFORMATION
  Report Type: Spontaneous
  Country: US (occurrence: None)
  Receive Date: 20130313
  Receipt Date: 20130313
  Transmission Date: 20140127
  Serious: No
  Sender: FDA-Public Use
  Company Number: None

PATIENT
  Sex: Female

DRUGS (1)
  1. TEMODAR [Suspect]
     Dosage: TOTAL DAILY DOSE 240 MG
     Route: 048

REACTIONS (2)
  - Accidental exposure to product [None]
  - Capsule physical issue [None]
